FAERS Safety Report 6280155-7 (Version None)
Quarter: 2009Q3

REPORT INFORMATION
  Report Type: 
  Country: None (occurrence: None)
  Receive Date: 20090723
  Receipt Date: 20090717
  Transmission Date: 20100115
  Serious: Yes (Hospitalization, Other)
  Sender: FDA-Public Use
  Company Number: PHHO2007US20875

PATIENT
  Sex: Male
  Weight: 143 kg

DRUGS (16)
  1. RAD 666 RAD+TAB+CMAS [Suspect]
     Indication: RENAL CANCER METASTATIC
     Dosage: CODE NOT BROKEN
     Route: 048
     Dates: start: 20070419
  2. OXYCODONE HCL [Concomitant]
     Dosage: 5MG
  3. METOPROLOL SUCCINATE [Concomitant]
     Dosage: 50MG
  4. LIPITOR [Concomitant]
     Dosage: 80MG
  5. PROTONIX [Concomitant]
     Dosage: 20MG
  6. SERTRALINE [Concomitant]
     Dosage: 50MG
  7. MOM [Concomitant]
     Dosage: 30ML
  8. BISACODYL [Concomitant]
     Dosage: 10MG
  9. LANTUS [Concomitant]
     Dosage: 16 UNITS
  10. COUMADIN [Concomitant]
     Dosage: 75MG
  11. SENOKOT [Concomitant]
     Dosage: UNK M, UNK
  12. NEFRIX [Concomitant]
     Dosage: 150MG
  13. ZOFRAN [Concomitant]
     Dosage: 4MG
  14. TYLENOL [Concomitant]
     Dosage: 650MG
  15. TRAMADOL [Concomitant]
  16. CALCIUM CARBONATE [Concomitant]
     Dosage: 500MG

REACTIONS (10)
  - FEMUR FRACTURE [None]
  - IMPAIRED HEALING [None]
  - KNEE ARTHROPLASTY [None]
  - MEDICAL DEVICE COMPLICATION [None]
  - METASTASES TO BONE [None]
  - PAIN IN EXTREMITY [None]
  - POSTOPERATIVE WOUND INFECTION [None]
  - WOUND CLOSURE [None]
  - WOUND DEHISCENCE [None]
  - WOUND DRAINAGE [None]
